FAERS Safety Report 9831409 (Version 3)
Quarter: 2016Q1

REPORT INFORMATION
  Report Type: Spontaneous
  Country: FR (occurrence: FR)
  Receive Date: 20140121
  Receipt Date: 20160209
  Transmission Date: 20160526
  Serious: Yes (Hospitalization, Other)
  Sender: FDA-Public Use
  Company Number: FR-BRISTOL-MYERS SQUIBB COMPANY-19925569

PATIENT
  Age: 87 Year
  Sex: Female

DRUGS (12)
  1. AROMASIN [Concomitant]
     Active Substance: EXEMESTANE
     Indication: PRODUCT USED FOR UNKNOWN INDICATION
     Dosage: 1DF: 1TAB
     Route: 065
  2. COUMADIN [Suspect]
     Active Substance: WARFARIN SODIUM
     Indication: PERICARDITIS
     Dosage: SCORED TABLET,1DF: ONE TO ONE AND A HALF TAB,03SEP-08NOV13,20NOV13-03DEC13
     Route: 048
     Dates: start: 20131120, end: 20131203
  3. CORTANCYL [Concomitant]
     Active Substance: PREDNISONE
     Indication: PRODUCT USED FOR UNKNOWN INDICATION
     Dosage: INCLUDED 12.5MG
     Route: 065
     Dates: end: 20131205
  4. CREON [Concomitant]
     Active Substance: PANCRELIPASE AMYLASE\PANCRELIPASE LIPASE\PANCRELIPASE PROTEASE
     Indication: PRODUCT USED FOR UNKNOWN INDICATION
     Dosage: CREON 25000U,1DF: 1TAB IN THE MORNING AND IN THE EVENING
     Route: 065
  5. SYMBICORT [Concomitant]
     Active Substance: BUDESONIDE\FORMOTEROL FUMARATE DIHYDRATE
     Indication: PRODUCT USED FOR UNKNOWN INDICATION
     Dosage: SYMBICORT 400/12 ?G,1DF: 2 INHALATIONS IN THE MORNING 7 IN THE EVENING
     Route: 065
  6. CANDESARTAN [Concomitant]
     Active Substance: CANDESARTAN
     Indication: PRODUCT USED FOR UNKNOWN INDICATION
     Dosage: CANDESARTAN 4MG,1DF:1TAB
     Route: 065
  7. ESOMEPRAZOLE [Concomitant]
     Active Substance: ESOMEPRAZOLE
     Indication: PRODUCT USED FOR UNKNOWN INDICATION
     Dosage: 40MG,1DF: 1TAB IN THE EVENING
     Route: 065
  8. KARDEGIC [Concomitant]
     Active Substance: ASPIRIN LYSINE
     Indication: PRODUCT USED FOR UNKNOWN INDICATION
     Dosage: REINTRODUCED TO 75 MG/D ORALLY
     Route: 065
     Dates: start: 20131108, end: 20131120
  9. FUROSEMIDE. [Concomitant]
     Active Substance: FUROSEMIDE
     Indication: PRODUCT USED FOR UNKNOWN INDICATION
     Dosage: FUROSEMIDE 20MG,1DF: 1TAB IN THE MORNING
     Route: 065
  10. DILTIAZEM HCL [Concomitant]
     Active Substance: DILTIAZEM HYDROCHLORIDE
     Indication: PRODUCT USED FOR UNKNOWN INDICATION
     Dosage: DILTIAZEM 90MG,1DF:1TAB
     Route: 065
  11. OROCAL [Concomitant]
     Active Substance: CALCIUM CARBONATE
     Indication: PRODUCT USED FOR UNKNOWN INDICATION
     Dosage: OROCAL D3 500/400,1DF: 2TABS/DAY
     Route: 065
  12. PARACETAMOL TABS 500 MG [Concomitant]
     Active Substance: ACETAMINOPHEN
     Indication: PAIN
     Dosage: 1DF: 6 TABS
     Route: 065

REACTIONS (5)
  - Gastric haemorrhage [Recovered/Resolved]
  - Gastritis [Recovered/Resolved]
  - International normalised ratio increased [Recovered/Resolved]
  - Off label use [Unknown]
  - Anaemia [Recovered/Resolved]

NARRATIVE: CASE EVENT DATE: 20131202
